FAERS Safety Report 19213701 (Version 3)
Quarter: 2021Q2

REPORT INFORMATION
  Report Type: Spontaneous
  Country: US (occurrence: US)
  Receive Date: 20210505
  Receipt Date: 20210523
  Transmission Date: 20210717
  Serious: No
  Sender: FDA-Public Use
  Company Number: US-AMGEN INC.-USASP2021066595

PATIENT
  Age: 39 Year
  Sex: Female
  Weight: 74.83 kg

DRUGS (2)
  1. AIMOVIG [Suspect]
     Active Substance: ERENUMAB-AOOE
     Dosage: 140 MILLIGRAM
     Route: 065
  2. AIMOVIG [Suspect]
     Active Substance: ERENUMAB-AOOE
     Indication: PRODUCT USED FOR UNKNOWN INDICATION
     Dosage: 70 MILLIGRAM, QMO
     Route: 065
     Dates: start: 20181227

REACTIONS (3)
  - Product dispensing error [Unknown]
  - Device difficult to use [Unknown]
  - Product communication issue [Unknown]

NARRATIVE: CASE EVENT DATE: 20210429
